FAERS Safety Report 18627140 (Version 2)
Quarter: 2021Q2

REPORT INFORMATION
  Report Type: Spontaneous
  Country: US (occurrence: US)
  Receive Date: 20201217
  Receipt Date: 20210604
  Transmission Date: 20210717
  Serious: No
  Sender: FDA-Public Use
  Company Number: US-BIOVITRUM-2020US7499

PATIENT
  Sex: Male

DRUGS (7)
  1. TYLENOL [Concomitant]
     Active Substance: ACETAMINOPHEN
  2. PEPCID [Concomitant]
     Active Substance: FAMOTIDINE
  3. SYNAGIS [Suspect]
     Active Substance: PALIVIZUMAB
     Indication: VENTRICULAR SEPTAL DEFECT
     Route: 030
  4. SYNAGIS [Suspect]
     Active Substance: PALIVIZUMAB
     Indication: CONGENITAL ANOMALY
  5. SYNAGIS [Suspect]
     Active Substance: PALIVIZUMAB
     Indication: INFECTIOUS PLEURAL EFFUSION
  6. SYNAGIS [Suspect]
     Active Substance: PALIVIZUMAB
     Indication: OESOPHAGEAL ATRESIA
  7. SYNAGIS [Suspect]
     Active Substance: PALIVIZUMAB
     Indication: CLEFT LIP AND PALATE

REACTIONS (1)
  - Weight decreased [Unknown]
